FAERS Safety Report 22935432 (Version 2)
Quarter: 2023Q4

REPORT INFORMATION
  Report Type: Report from Study
  Country: CN (occurrence: CN)
  Receive Date: 20230912
  Receipt Date: 20231122
  Transmission Date: 20240109
  Serious: Yes (Other)
  Sender: FDA-Public Use
  Company Number: CN-SUN PHARMACEUTICAL INDUSTRIES LTD-2023R1-407896

PATIENT
  Age: 65 Year
  Sex: Male

DRUGS (12)
  1. FUROSEMIDE [Suspect]
     Active Substance: FUROSEMIDE
     Indication: Lung carcinoma cell type unspecified recurrent
     Dosage: UNK
     Route: 065
  2. FUROSEMIDE [Suspect]
     Active Substance: FUROSEMIDE
     Indication: Metastasis
  3. OXALIPLATIN [Suspect]
     Active Substance: OXALIPLATIN
     Indication: Lung carcinoma cell type unspecified recurrent
     Dosage: UNK
     Route: 065
  4. OXALIPLATIN [Suspect]
     Active Substance: OXALIPLATIN
     Indication: Metastasis
  5. CAMRELIZUMAB [Suspect]
     Active Substance: CAMRELIZUMAB
     Indication: Lung carcinoma cell type unspecified recurrent
     Dosage: UNK
     Route: 065
  6. CAMRELIZUMAB [Suspect]
     Active Substance: CAMRELIZUMAB
     Indication: Metastasis
  7. CYCLOPHOSPHAMIDE [Suspect]
     Active Substance: CYCLOPHOSPHAMIDE
     Indication: Lung carcinoma cell type unspecified recurrent
     Dosage: UNK
     Route: 065
  8. CYCLOPHOSPHAMIDE [Suspect]
     Active Substance: CYCLOPHOSPHAMIDE
     Indication: Metastasis
  9. IOHEXOL [Suspect]
     Active Substance: IOHEXOL
     Indication: Lung carcinoma cell type unspecified recurrent
     Dosage: UNK
     Route: 065
  10. IOHEXOL [Suspect]
     Active Substance: IOHEXOL
     Indication: Metastasis
  11. TISLELIZUMAB [Suspect]
     Active Substance: TISLELIZUMAB
     Indication: Lung carcinoma cell type unspecified recurrent
     Dosage: UNK
     Route: 065
  12. TISLELIZUMAB [Suspect]
     Active Substance: TISLELIZUMAB
     Indication: Metastasis

REACTIONS (1)
  - Tubulointerstitial nephritis [Recovering/Resolving]
